FAERS Safety Report 8382324-9 (Version None)
Quarter: 2012Q2

REPORT INFORMATION
  Report Type: 
  Country: None (occurrence: None)
  Receive Date: 20120503
  Receipt Date: 20120423
  Transmission Date: 20120825
  Serious: Yes (Hospitalization)
  Sender: FDA-Public Use
  Company Number: AEUSA201200135

PATIENT
  Age: 32 Year
  Sex: Male
  Weight: 150.5942 kg

DRUGS (4)
  1. GAMUNEX [Suspect]
     Indication: CHRONIC INFLAMMATORY DEMYELINATING POLYRADICULONEUROPATHY
     Dosage: IV
     Route: 042
     Dates: start: 20120207, end: 20120228
  2. PREDNISONE TAB [Concomitant]
  3. CELLCEPT [Concomitant]
  4. LOVENOX [Concomitant]

REACTIONS (7)
  - INTERNATIONAL NORMALISED RATIO DECREASED [None]
  - PLATELET COUNT INCREASED [None]
  - SPLENIC INFARCTION [None]
  - CARDIOLIPIN ANTIBODY POSITIVE [None]
  - BLOOD ALBUMIN DECREASED [None]
  - SPLENIC EMBOLISM [None]
  - WHITE BLOOD CELL COUNT INCREASED [None]
